FAERS Safety Report 17802113 (Version 1)
Quarter: 2020Q2

REPORT INFORMATION
  Report Type: Spontaneous
  Country: US (occurrence: US)
  Receive Date: 20200518
  Receipt Date: 20200518
  Transmission Date: 20200714
  Serious: Yes (Other)
  Sender: FDA-Public Use
  Company Number: None

PATIENT
  Age: 52 Year
  Sex: Male
  Weight: 116.1 kg

DRUGS (17)
  1. TESTOSTERONE CYPIONATE INJECTION 200 MG/ML [Suspect]
     Active Substance: TESTOSTERONE CYPIONATE
     Indication: BLOOD TESTOSTERONE DECREASED
     Dosage: ?          QUANTITY:1 INJECTION(S);OTHER FREQUENCY:WEEKLY;?
     Route: 030
     Dates: start: 20180725, end: 20200223
  2. FUROSEMIDE. [Concomitant]
     Active Substance: FUROSEMIDE
  3. ONDANSETRON [Concomitant]
     Active Substance: ONDANSETRON
  4. CITALOPRAM [Concomitant]
     Active Substance: CITALOPRAM HYDROBROMIDE
  5. PROBENECID/COLCHICINE [Concomitant]
     Active Substance: COLCHICINE\PROBENECID
  6. HYDROMORPHONE [Concomitant]
     Active Substance: HYDROMORPHONE
  7. TOPIRAMATE. [Concomitant]
     Active Substance: TOPIRAMATE
  8. CLOPIDOGREL [Concomitant]
     Active Substance: CLOPIDOGREL BISULFATE
  9. LORAZEPAM. [Concomitant]
     Active Substance: LORAZEPAM
  10. POTASSIUM [Concomitant]
     Active Substance: POTASSIUM
  11. RIZATRIPTAN. [Concomitant]
     Active Substance: RIZATRIPTAN
  12. TESTOSTERONE. [Concomitant]
     Active Substance: TESTOSTERONE
  13. ACETAZOLAMIDE. [Concomitant]
     Active Substance: ACETAZOLAMIDE
  14. AMITRIPTYLINE [Concomitant]
     Active Substance: AMITRIPTYLINE
  15. VITAMIN C [Concomitant]
     Active Substance: ASCORBIC ACID
  16. CYCLOBENZAPRINE. [Concomitant]
     Active Substance: CYCLOBENZAPRINE
  17. ANASTROZOLE. [Concomitant]
     Active Substance: ANASTROZOLE

REACTIONS (3)
  - Hypersensitivity [None]
  - Injection site pain [None]
  - Injection site reaction [None]

NARRATIVE: CASE EVENT DATE: 20200222
